FAERS Safety Report 23678932 (Version 1)
Quarter: 2024Q1

REPORT INFORMATION
  Report Type: Spontaneous
  Country: CN (occurrence: CN)
  Receive Date: 20240327
  Receipt Date: 20240327
  Transmission Date: 20240410
  Serious: Yes (Other)
  Sender: FDA-Public Use
  Company Number: CN-PFIZER INC-PV202400040204

PATIENT
  Age: 3 Year
  Sex: Male
  Weight: 16 kg

DRUGS (4)
  1. CYTARABINE [Suspect]
     Active Substance: CYTARABINE
     Indication: Chemotherapy
     Dosage: 36 MG, 1X/DAY
     Route: 037
     Dates: start: 20240303, end: 20240303
  2. CYTARABINE [Suspect]
     Active Substance: CYTARABINE
     Indication: Acute lymphocytic leukaemia
  3. METHOTREXATE [Suspect]
     Active Substance: METHOTREXATE
     Indication: Chemotherapy
     Dosage: 12 MG, 1X/DAY
     Route: 037
     Dates: start: 20240303, end: 20240303
  4. METHOTREXATE [Suspect]
     Active Substance: METHOTREXATE
     Indication: Acute lymphocytic leukaemia

REACTIONS (5)
  - Myelosuppression [Recovering/Resolving]
  - Cough [Recovering/Resolving]
  - Fungal infection [Unknown]
  - Oxygen saturation decreased [Unknown]
  - Erythema [Unknown]

NARRATIVE: CASE EVENT DATE: 20240307
